FAERS Safety Report 10939269 (Version 2)
Quarter: 2015Q2

REPORT INFORMATION
  Report Type: Spontaneous
  Country: US (occurrence: US)
  Receive Date: 20150322
  Receipt Date: 20150525
  Transmission Date: 20150821
  Serious: Yes (Other)
  Sender: FDA-Public Use
  Company Number: US-JNJFOC-20140511966

PATIENT
  Age: 62 Year
  Sex: Female
  Weight: 63.5 kg

DRUGS (9)
  1. NUCYNTA ER [Suspect]
     Active Substance: TAPENTADOL HYDROCHLORIDE
     Indication: BACK PAIN
     Dosage: 150 MG TWICE A DAY EVERY 12 HOURS.
     Route: 048
     Dates: start: 2013
  2. NUCYNTA ER [Suspect]
     Active Substance: TAPENTADOL HYDROCHLORIDE
     Indication: BACK PAIN
     Dosage: 150 MG TWICE A DAY EVERY 12 HOURS.
     Route: 048
     Dates: start: 2011, end: 2012
  3. CYMBALTA [Concomitant]
     Active Substance: DULOXETINE HYDROCHLORIDE
     Indication: PAIN
     Dosage: TWICE A DAY
     Route: 048
  4. BUPROPION [Concomitant]
     Active Substance: BUPROPION
     Indication: DEPRESSION
     Dosage: ONCE A DAY
     Route: 048
     Dates: start: 2013
  5. GABAPENTIN. [Concomitant]
     Active Substance: GABAPENTIN
     Indication: PAIN
     Dosage: 3 TIMES A DAY
     Route: 048
     Dates: start: 2009
  6. AMRIX [Concomitant]
     Active Substance: CYCLOBENZAPRINE HYDROCHLORIDE
     Indication: SLEEP DISORDER THERAPY
     Dosage: ONCE OR TWICE A MONTH
     Route: 048
  7. CLONIDINE. [Concomitant]
     Active Substance: CLONIDINE
     Indication: PANIC ATTACK
     Dosage: AS NEEDED
     Route: 048
     Dates: start: 2013
  8. NUCYNTA ER [Suspect]
     Active Substance: TAPENTADOL HYDROCHLORIDE
     Indication: BACK PAIN
     Dosage: 100 MG 2-3 TABLETS A DAY
     Route: 048
     Dates: start: 2014
  9. CLONIDINE. [Concomitant]
     Active Substance: CLONIDINE
     Indication: ANXIETY
     Dosage: AS NEEDED
     Route: 048
     Dates: start: 2013

REACTIONS (5)
  - Drug screen positive [Unknown]
  - Back pain [Recovered/Resolved]
  - Pain [Not Recovered/Not Resolved]
  - Drug screen positive [Not Recovered/Not Resolved]
  - Drug dose omission [Unknown]

NARRATIVE: CASE EVENT DATE: 2012
